FAERS Safety Report 17367144 (Version 1)
Quarter: 2020Q1

REPORT INFORMATION
  Report Type: Spontaneous
  Country: FR (occurrence: FR)
  Receive Date: 20200204
  Receipt Date: 20200204
  Transmission Date: 20200409
  Serious: Yes (Other)
  Sender: FDA-Public Use
  Company Number: FR-009507513-2002FRA000697

PATIENT
  Age: 67 Year
  Sex: Female

DRUGS (2)
  1. SINEMET [Suspect]
     Active Substance: CARBIDOPA\LEVODOPA
     Dosage: 1 TABLET IN THE MORNING AND AT 3PM
     Route: 048
     Dates: start: 200001
  2. SINEMET L.P. [Suspect]
     Active Substance: CARBIDOPA\LEVODOPA
     Dosage: STRENGTH 100/25 (UNIT NOT PROVIDED); 1 TABLET AT 12:30PM, AT 5:30 PM AND 2 TABLETS AT 10 PM
     Route: 048
     Dates: start: 20200125

REACTIONS (3)
  - Parathyroid tumour benign [Unknown]
  - Foreign body in respiratory tract [Unknown]
  - Product quality issue [Unknown]

NARRATIVE: CASE EVENT DATE: 20200125
